FAERS Safety Report 10696292 (Version 7)
Quarter: 2017Q2

REPORT INFORMATION
  Report Type: Report from Study
  Country: US (occurrence: US)
  Receive Date: 20150107
  Receipt Date: 20170621
  Transmission Date: 20170829
  Serious: Yes (Death, Other)
  Sender: FDA-Public Use
  Company Number: US-UCBSA-2015000013

PATIENT
  Age: 90 Year
  Sex: Female
  Weight: 64 kg

DRUGS (3)
  1. VIMPAT [Suspect]
     Active Substance: LACOSAMIDE
     Indication: SEIZURE
     Dosage: 200 MG, 2 TAB DAILY, EXPIRATION DATE: 31-MAR-2019
     Route: 048
     Dates: start: 201309
  2. LEVETIRACETAM. [Suspect]
     Active Substance: LEVETIRACETAM
     Indication: PARTIAL SEIZURES
     Dosage: 250 MG
  3. DILANTIN [Concomitant]
     Active Substance: PHENYTOIN
     Indication: SEIZURE
     Dosage: UNK
     Route: 048

REACTIONS (4)
  - Agitation [Unknown]
  - Generalised tonic-clonic seizure [Recovered/Resolved]
  - Death [Fatal]
  - Dental caries [Recovered/Resolved]

NARRATIVE: CASE EVENT DATE: 2015
